FAERS Safety Report 22397061 (Version 1)
Quarter: 2023Q2

REPORT INFORMATION
  Report Type: Spontaneous
  Country: US (occurrence: US)
  Receive Date: 20230602
  Receipt Date: 20230602
  Transmission Date: 20230722
  Serious: Yes (Other)
  Sender: FDA-Public Use
  Company Number: US-009507513-2305USA008497

PATIENT
  Age: 32 Year
  Sex: Male

DRUGS (6)
  1. ZERBAXA [Suspect]
     Active Substance: CEFTOLOZANE SULFATE\TAZOBACTAM SODIUM
     Indication: Pseudomonas infection
     Dosage: UNK
  2. ZERBAXA [Suspect]
     Active Substance: CEFTOLOZANE SULFATE\TAZOBACTAM SODIUM
     Dosage: 0.15 GRAM, Q8H (ADJUSTED AT THIRD DAY OF THERAPY)
  3. ZERBAXA [Suspect]
     Active Substance: CEFTOLOZANE SULFATE\TAZOBACTAM SODIUM
     Dosage: AFTER SEVEN DAYS, THE DOSE WAS INCREASED
  4. CEFAZOLIN [Concomitant]
     Active Substance: CEFAZOLIN
     Indication: Endocarditis staphylococcal
  5. MEROPENEM [Concomitant]
     Active Substance: MEROPENEM
     Indication: Pseudomonas infection
  6. MEROPENEM [Concomitant]
     Active Substance: MEROPENEM
     Indication: Klebsiella infection

REACTIONS (1)
  - Pathogen resistance [Unknown]
